FAERS Safety Report 20379183 (Version 1)
Quarter: 2022Q1

REPORT INFORMATION
  Report Type: Spontaneous
  Country: US (occurrence: US)
  Receive Date: 20220126
  Receipt Date: 20220126
  Transmission Date: 20220423
  Serious: No
  Sender: FDA-Public Use
  Company Number: US-PERRIGO-21US000350

PATIENT
  Age: 49 Year
  Sex: Male
  Weight: 86.17 kg

DRUGS (1)
  1. OMEPRAZOLE [Suspect]
     Active Substance: OMEPRAZOLE
     Indication: Dyspepsia
     Dosage: ONE OMEPRAZOLE DR 20 MG WILDBERRY MINT TABLET DAILY
     Route: 050
     Dates: start: 202012, end: 202012

REACTIONS (1)
  - Drug ineffective [Unknown]

NARRATIVE: CASE EVENT DATE: 20201201
